FAERS Safety Report 25840783 (Version 3)
Quarter: 2025Q4

REPORT INFORMATION
  Report Type: Report from Study
  Country: US (occurrence: US)
  Receive Date: 20250924
  Receipt Date: 20251031
  Transmission Date: 20260118
  Serious: No
  Sender: DECIPHERA PHARMACEUTICALS
  Company Number: US-DECIPHERA PHARMACEUTICALS LLC-2025US001144

PATIENT
  Age: 68 Year
  Sex: Male
  Weight: 80.726 kg

DRUGS (28)
  1. QINLOCK [Suspect]
     Active Substance: RIPRETINIB
     Indication: Gastrointestinal stromal tumour
     Dosage: 100 MILLIGRAM, QD
  2. QINLOCK [Suspect]
     Active Substance: RIPRETINIB
     Dosage: 150 MILLIGRAM, QD
     Dates: start: 202508
  3. ASPIRIN [Concomitant]
     Active Substance: ASPIRIN
     Indication: Product used for unknown indication
     Dosage: UNK
  4. ATORVASTATIN CALCIUM [Concomitant]
     Active Substance: ATORVASTATIN CALCIUM
     Indication: Product used for unknown indication
     Dosage: UNK
  5. DRONABINOL [Concomitant]
     Active Substance: DRONABINOL
     Indication: Product used for unknown indication
     Dosage: UNK
  6. ENTRESTO [Concomitant]
     Active Substance: SACUBITRIL\VALSARTAN
     Indication: Product used for unknown indication
     Dosage: UNK
  7. ESCITALOPRAM [Concomitant]
     Active Substance: ESCITALOPRAM OXALATE
     Indication: Product used for unknown indication
     Dosage: UNK
  8. FARXIGA [Concomitant]
     Active Substance: DAPAGLIFLOZIN PROPANEDIOL
     Indication: Product used for unknown indication
     Dosage: UNK
  9. LYSINE [Concomitant]
     Active Substance: LYSINE
     Indication: Product used for unknown indication
     Dosage: UNK
  10. CALTRATE [Concomitant]
     Active Substance: CALCIUM CARBONATE
     Indication: Product used for unknown indication
     Dosage: 600 UNK
  11. CARVEDILOL [Concomitant]
     Active Substance: CARVEDILOL
     Indication: Product used for unknown indication
     Dosage: UNK
  12. MORPHINE SULFATE [Concomitant]
     Active Substance: MORPHINE SULFATE
     Indication: Product used for unknown indication
     Dosage: UNK
  13. NITROGLYCERIN [Concomitant]
     Active Substance: NITROGLYCERIN
     Indication: Product used for unknown indication
     Dosage: UNK
  14. OMEGA-3 FATTY ACIDS [Concomitant]
     Active Substance: OMEGA-3 FATTY ACIDS
     Indication: Product used for unknown indication
     Dosage: UNK
  15. CELECOXIB [Concomitant]
     Active Substance: CELECOXIB
     Indication: Product used for unknown indication
     Dosage: UNK
  16. ACCOMIN CENTRUM [Concomitant]
     Indication: Product used for unknown indication
     Dosage: UNK
  17. DIPHENHYDRAMINE [Concomitant]
     Active Substance: DIPHENHYDRAMINE
     Indication: Product used for unknown indication
     Dosage: UNK
  18. ONDANSETRON [Concomitant]
     Active Substance: ONDANSETRON
     Indication: Product used for unknown indication
     Dosage: UNK
  19. OXYCODONE AND ACETAMINOPHEN [Concomitant]
     Active Substance: ACETAMINOPHEN\OXYCODONE HYDROCHLORIDE
     Indication: Product used for unknown indication
     Dosage: UNK
  20. POTASSIUM [Concomitant]
     Active Substance: POTASSIUM
     Indication: Product used for unknown indication
     Dosage: UNK
  21. PROMETHAZINE [Concomitant]
     Active Substance: PROMETHAZINE HYDROCHLORIDE
     Indication: Product used for unknown indication
     Dosage: UNK
  22. SPIRONOLACTONE [Concomitant]
     Active Substance: SPIRONOLACTONE
     Indication: Product used for unknown indication
     Dosage: UNK
  23. SUNITINIB [Concomitant]
     Active Substance: SUNITINIB
     Indication: Product used for unknown indication
     Dosage: UNK
  24. UBIQUINOL [Concomitant]
     Active Substance: UBIQUINOL
     Indication: Product used for unknown indication
     Dosage: UNK
  25. VITAMIN D3 [Concomitant]
     Active Substance: CHOLECALCIFEROL
     Indication: Product used for unknown indication
     Dosage: UNK
  26. .ALPHA.-TOCOPHEROL [Concomitant]
     Active Substance: .ALPHA.-TOCOPHEROL
     Indication: Product used for unknown indication
     Dosage: UNK
  27. CENTAURIUM [Concomitant]
     Indication: Product used for unknown indication
     Dosage: UNK
  28. FISH OIL\OMEGA-3 FATTY ACIDS [Concomitant]
     Active Substance: FISH OIL\OMEGA-3 FATTY ACIDS

REACTIONS (5)
  - Muscle spasms [Recovered/Resolved]
  - Fatigue [Not Recovered/Not Resolved]
  - Dyspnoea [Unknown]
  - Nausea [Not Recovered/Not Resolved]
  - Product dose omission issue [Unknown]

NARRATIVE: CASE EVENT DATE: 20250101
